FAERS Safety Report 25767256 (Version 1)
Quarter: 2025Q3

REPORT INFORMATION
  Report Type: Spontaneous
  Country: US (occurrence: None)
  Receive Date: 20250904
  Receipt Date: 20250904
  Transmission Date: 20251020
  Serious: No
  Sender: FDA-CTU
  Company Number: None

PATIENT
  Age: 59 Year

DRUGS (1)
  1. GAMUNEX-C [Suspect]
     Active Substance: HUMAN IMMUNOGLOBULIN G
     Dates: start: 20250904, end: 20250904

REACTIONS (3)
  - Infusion related reaction [None]
  - Blood pressure increased [None]
  - Head discomfort [None]

NARRATIVE: CASE EVENT DATE: 20250904
